FAERS Safety Report 25644205 (Version 1)
Quarter: 2025Q3

REPORT INFORMATION
  Report Type: Spontaneous
  Country: IL (occurrence: IL)
  Receive Date: 20250805
  Receipt Date: 20250805
  Transmission Date: 20251021
  Serious: Yes (Other)
  Sender: PFIZER
  Company Number: IL-PFIZER INC-PV202500092490

PATIENT
  Age: 11 Year
  Sex: Male

DRUGS (2)
  1. AZITHROMYCIN [Suspect]
     Active Substance: AZITHROMYCIN
     Indication: Typhoid fever
     Route: 048
  2. CEFTRIAXONE [Suspect]
     Active Substance: CEFTRIAXONE
     Indication: Typhoid fever
     Route: 051

REACTIONS (5)
  - Vasculitic rash [Recovering/Resolving]
  - C-reactive protein increased [Recovering/Resolving]
  - Treatment noncompliance [Unknown]
  - Drug effective for unapproved indication [Unknown]
  - Off label use [Unknown]
